FAERS Safety Report 4404184-0 (Version None)
Quarter: 2004Q3

REPORT INFORMATION
  Report Type: 
  Country: None (occurrence: None)
  Receive Date: 20040721
  Receipt Date: 20040721
  Transmission Date: 20050211
  Serious: Yes (Hospitalization)
  Sender: FDA-Public Use
  Company Number: None

PATIENT
  Age: 76 Year
  Sex: Male
  Weight: 80.7 kg

DRUGS (12)
  1. PIPERACILLIN /TAZOBACTAM [Suspect]
     Indication: ABDOMINAL ABSCESS
     Dosage: 2.25 GM IV
     Route: 042
     Dates: start: 20040129, end: 20040129
  2. LEVOFLOXACIN [Suspect]
     Dosage: 500 MG PO
     Route: 048
     Dates: start: 20040111, end: 20040118
  3. DOCUSATE NA [Concomitant]
  4. RABEPRAZOLE NA [Concomitant]
  5. ASPIRIN [Concomitant]
  6. FERROUS SO4 [Concomitant]
  7. NAPROXEN [Concomitant]
  8. SILDENAFIL CITRATE [Concomitant]
  9. TERAZOSIN HCL [Concomitant]
  10. TERAZOSIN HCL [Concomitant]
  11. METRONIDAZOLE [Concomitant]
  12. METOCLOPRAMIDE [Concomitant]

REACTIONS (1)
  - CLOSTRIDIAL INFECTION [None]
